FAERS Safety Report 6491966-7 (Version None)
Quarter: 2009Q4

REPORT INFORMATION
  Report Type: 
  Country: None (occurrence: None)
  Receive Date: 20091208
  Receipt Date: 20091123
  Transmission Date: 20100525
  Serious: Yes (Hospitalization, Disabling, Other)
  Sender: FDA-Public Use
  Company Number: AUR-APL-2009-01393

PATIENT
  Sex: Male

DRUGS (5)
  1. CITALOPRAM HYDROBROMIDE [Suspect]
  2. VALPROIC ACID [Suspect]
  3. CYAMEMAZINE [Suspect]
  4. ALIMEMAZINE [Suspect]
  5. OXAZEPAM [Suspect]

REACTIONS (8)
  - AFFECT LABILITY [None]
  - ATAXIA [None]
  - DRUG TOXICITY [None]
  - HYPONATRAEMIA [None]
  - METABOLIC DISORDER [None]
  - NUCLEAR MAGNETIC RESONANCE IMAGING BRAIN ABNORMAL [None]
  - OSMOTIC DEMYELINATION SYNDROME [None]
  - SOMNOLENCE [None]
